FAERS Safety Report 16596116 (Version 1)
Quarter: 2019Q3

REPORT INFORMATION
  Report Type: Spontaneous
  Country: GB (occurrence: GB)
  Receive Date: 20190719
  Receipt Date: 20190719
  Transmission Date: 20191004
  Serious: Yes (Other)
  Sender: FDA-Public Use
  Company Number: GB-ACCORD-139068

PATIENT
  Age: 75 Year
  Sex: Female
  Weight: 77 kg

DRUGS (6)
  1. LERCANIDIPINE [Concomitant]
     Active Substance: LERCANIDIPINE
  2. ALDOMET [Concomitant]
     Active Substance: METHYLDOPA
  3. FUROSEMIDE. [Concomitant]
     Active Substance: FUROSEMIDE
  4. METFORMIN [Concomitant]
     Active Substance: METFORMIN HYDROCHLORIDE
  5. ATORVASTATIN/ATORVASTATIN CALCIUM [Suspect]
     Active Substance: ATORVASTATIN CALCIUM
     Indication: BLOOD CHOLESTEROL
     Route: 048
     Dates: start: 20170318, end: 20170516
  6. MOXONIDINE [Concomitant]
     Active Substance: MOXONIDINE

REACTIONS (2)
  - Hair texture abnormal [Not Recovered/Not Resolved]
  - Alopecia [Not Recovered/Not Resolved]
